FAERS Safety Report 9174802 (Version 2)
Quarter: 2014Q1

REPORT INFORMATION
  Report Type: Spontaneous
  Country: US (occurrence: US)
  Receive Date: 20130320
  Receipt Date: 20140117
  Transmission Date: 20141002
  Serious: Yes (Other)
  Sender: FDA-Public Use
  Company Number: US-BAYER-2013-033310

PATIENT
  Age: 21 Year
  Sex: Female

DRUGS (5)
  1. YAZ [Suspect]
  2. YASMIN [Suspect]
  3. OCELLA [Suspect]
  4. ZEGERID [Concomitant]
     Dosage: 40 MG, UNK
     Dates: start: 20090515
  5. ZYRTEC [Concomitant]
     Dosage: UNK, 1 EVERY DAY
     Dates: start: 20090619

REACTIONS (4)
  - Cholecystectomy [None]
  - Cholecystitis [None]
  - Injury [None]
  - Emotional distress [None]
